FAERS Safety Report 10916103 (Version 2)
Quarter: 2015Q2

REPORT INFORMATION
  Report Type: Spontaneous
  Country: DE (occurrence: DE)
  Receive Date: 20150316
  Receipt Date: 20150511
  Transmission Date: 20150821
  Serious: Yes (Hospitalization)
  Sender: FDA-Public Use
  Company Number: DE-PFIZER INC-2015049355

PATIENT
  Age: 68 Year
  Sex: Male

DRUGS (20)
  1. RAPAMUNE [Suspect]
     Active Substance: SIROLIMUS
     Indication: PROPHYLAXIS AGAINST TRANSPLANT REJECTION
     Dosage: 1.5 MG ON MONDAY, WEDNESDAY, FRIDAY AND AT 1MG ON TUESDAY, THURSDAY, SATURDAY AND SUNDAY
     Dates: end: 20140415
  2. CANDESARTAN HEXAL 32 MG [Concomitant]
     Indication: HYPERTENSION
     Dosage: 1 DF, 1X/DAY (IN THE MORNING)
  3. TOREM [Concomitant]
     Active Substance: TORSEMIDE
     Dosage: AS NEEDED 0.5 DF
  4. BICANORM [Concomitant]
     Active Substance: SODIUM BICARBONATE
     Dosage: 1 DF, DAILY (IN THE MORNING)
  5. MOXONIDIN [Concomitant]
     Active Substance: MOXONIDINE
     Indication: HYPERTENSION
     Dosage: 0.3 MG, 1X/DAY ( IN THE EVENING)
  6. ADVAGRAF [Concomitant]
     Active Substance: TACROLIMUS
     Dosage: 3 MG, 1X/DAY (IN THE MORNING) AT 10:00 AM
     Dates: start: 20140815
  7. LOCOL [Concomitant]
     Active Substance: FLUVASTATIN SODIUM
     Indication: HYPERLIPIDAEMIA
     Dosage: 1 DF, DAILY (IN THE EVENING)
  8. RAPAMUNE [Suspect]
     Active Substance: SIROLIMUS
     Dosage: 1 MG, 1X/DAY (AT NOON)
     Dates: start: 20150225
  9. VIGANTOLETTEN [Concomitant]
     Active Substance: CHOLECALCIFEROL
     Dosage: 1000 IU, 1X/DAY
  10. RAMIPRIL. [Concomitant]
     Active Substance: RAMIPRIL
     Dosage: 2 DF, DAILY (IN THE MORNING)
  11. MAGNESIUM VERLA 300 [Concomitant]
     Dosage: 1 DF, DAILY (IN THE MORNING)
  12. METOPROLOL SUCCINATE. [Concomitant]
     Active Substance: METOPROLOL SUCCINATE
     Dosage: 1 DF, 2X/DAY (IN THE MORNING AND IN THE EVENING)
  13. TERBINAFIN BETA [Concomitant]
     Indication: FUNGAL INFECTION
     Dosage: 2 WEEKS 1X/DAY AND AFTERWARDS 1X/WEEK (AT NOON)
     Dates: start: 2015
  14. PANTOZOL [Concomitant]
     Active Substance: PANTOPRAZOLE SODIUM
     Indication: PROPHYLAXIS
     Dosage: 40 MG, 1X/DAY (IN THE MORNING)
  15. ADVAGRAF [Concomitant]
     Active Substance: TACROLIMUS
     Indication: IMMUNOSUPPRESSION
     Dosage: 1 MG, 3X/DAY (IN THE MORNING) AT 10:00 AM
     Dates: start: 2014
  16. AMLODIPIN 1A PHARMA GMBH [Concomitant]
     Indication: HYPERTENSION
     Dosage: 10 MG, 1X/DAY (IN THE EVENING)
     Dates: start: 2014
  17. LOCERYL NAGELLACK [Concomitant]
     Indication: ONYCHOMYCOSIS
     Dosage: 1-2  PER WEEK
  18. DECORTIN [Concomitant]
     Active Substance: PREDNISONE
     Dosage: 0.5 DF, DAILY (IN THE MORNING)
  19. ASS 100 - 1A PHARMA [Concomitant]
     Indication: PLATELET AGGREGATION INHIBITION
     Dosage: 1 DF, 1X/DAY (AT NOON)
  20. AMLODIPINE [Concomitant]
     Active Substance: AMLODIPINE BESYLATE
     Indication: HYPERTENSION
     Dosage: 5 MG, 1X/DAY (IN THE MORNING)

REACTIONS (10)
  - Skin fissures [Recovered/Resolved]
  - Fungal skin infection [Recovered/Resolved]
  - Skin discolouration [Not Recovered/Not Resolved]
  - Skin exfoliation [Not Recovered/Not Resolved]
  - Skin oedema [Not Recovered/Not Resolved]
  - Skin hypertrophy [Not Recovered/Not Resolved]
  - Pain of skin [Not Recovered/Not Resolved]
  - Listless [Unknown]
  - Bronchitis [Unknown]
  - Fatigue [Unknown]

NARRATIVE: CASE EVENT DATE: 20150303
